FAERS Safety Report 23952431 (Version 8)
Quarter: 2024Q4

REPORT INFORMATION
  Report Type: Spontaneous
  Country: US (occurrence: US)
  Receive Date: 20240607
  Receipt Date: 20241104
  Transmission Date: 20250115
  Serious: No
  Sender: PFIZER
  Company Number: US-PFIZER INC-202400107675

PATIENT
  Age: 12 Year
  Sex: Male
  Weight: 40.82 kg

DRUGS (2)
  1. GENOTROPIN [Suspect]
     Active Substance: SOMATROPIN
     Indication: Short stature
     Dosage: 1.5 MG, DAILY
     Route: 058
     Dates: start: 202101
  2. GENOTROPIN [Suspect]
     Active Substance: SOMATROPIN
     Indication: Osteogenesis imperfecta
     Dosage: 2 MG, DAILY NIGHTLY
     Route: 058

REACTIONS (4)
  - Device use issue [Unknown]
  - Device mechanical issue [Unknown]
  - Drug dose omission by device [Unknown]
  - Product prescribing error [Unknown]

NARRATIVE: CASE EVENT DATE: 20240501
